FAERS Safety Report 7987523-3 (Version None)
Quarter: 2011Q4

REPORT INFORMATION
  Report Type: 
  Country: None (occurrence: None)
  Receive Date: 20111216
  Receipt Date: 20111205
  Transmission Date: 20120403
  Serious: Yes (Hospitalization, Other)
  Sender: FDA-Public Use
  Company Number: PHHO2011JP17258

PATIENT
  Sex: Male
  Weight: 59 kg

DRUGS (31)
  1. ALISKIREN [Suspect]
     Indication: CARDIAC FAILURE
     Dosage: UNK
     Route: 048
     Dates: start: 20100514
  2. ALISKIREN [Suspect]
     Dosage: 150 MG, DAILY
     Route: 048
     Dates: start: 20100423, end: 20100423
  3. ENALAPRIL MALEATE [Suspect]
     Dosage: 20 MG, DAILY
     Route: 048
     Dates: start: 20100409
  4. DEXTROSE [Concomitant]
     Indication: VOMITING
     Dosage: 20 MG, UNK
     Route: 042
     Dates: start: 20111020, end: 20111102
  5. ZOLPIDEM [Concomitant]
     Indication: INSOMNIA
     Dosage: 10 MG, UNK
     Route: 048
     Dates: start: 20111027, end: 20111027
  6. PURSENNID [Concomitant]
     Indication: NAUSEA
     Dosage: UNK
     Dates: start: 20111104, end: 20111104
  7. CALCIUM POLYSTYRENE SULFONATE [Concomitant]
     Dosage: UNK
     Route: 048
     Dates: start: 20111011, end: 20111014
  8. VITACIMIN [Concomitant]
     Indication: VOMITING
     Dosage: 100 MG, UNK
     Route: 042
     Dates: start: 20111020, end: 20111027
  9. ALDACTONE [Concomitant]
     Indication: CARDIAC FAILURE CHRONIC
     Dosage: 4 MG, UNK
     Route: 048
     Dates: start: 20111110
  10. ENALAPRIL MALEATE [Suspect]
     Dosage: 10 MG, DAILY
     Route: 048
     Dates: start: 20100423
  11. ASPIRIN [Concomitant]
     Indication: CARDIAC FAILURE CHRONIC
     Dosage: 10 MG, UNK
     Route: 048
  12. NITROGLYCERIN [Concomitant]
     Indication: NAUSEA
     Dosage: UNK
     Route: 048
     Dates: start: 20111018, end: 20111018
  13. TORSEMIDE [Concomitant]
     Indication: CARDIAC FAILURE CHRONIC
     Dosage: 4 MG, UNK
     Route: 048
     Dates: start: 20111110
  14. AMIODARONE HCL [Concomitant]
     Indication: VENTRICULAR TACHYCARDIA
     Dosage: 100 MG, UNK
     Route: 048
  15. LIVALO KOWA [Concomitant]
     Indication: HYPERLIPIDAEMIA
     Dosage: 2 MG, UNK
     Route: 048
  16. LEVOTHYROXINE SODIUM [Concomitant]
     Indication: HYPOTHYROIDISM
     Dosage: 25 UG, UNK
     Route: 048
  17. GLYCERIN [Concomitant]
     Indication: NAUSEA
     Dosage: UNK
     Route: 051
     Dates: start: 20111008
  18. OMEPRAZOLE [Concomitant]
     Indication: VOMITING
     Dosage: 20 MG, UNK
     Route: 042
     Dates: start: 20111020, end: 20111027
  19. DEXTROSE [Concomitant]
     Dosage: 40 MG, UNK
     Route: 042
     Dates: start: 20111026, end: 20111027
  20. CARVEDILOL [Concomitant]
     Indication: CARDIAC FAILURE CHRONIC
     Dosage: 10 MG, UNK
     Route: 048
  21. PLAVIX [Concomitant]
     Indication: CARDIAC FAILURE CHRONIC
     Dosage: 75 MG, UNK
     Route: 048
  22. MAGNESIUM OXIDE [Concomitant]
     Indication: NAUSEA
     Dosage: 330 MG, UNK
     Route: 048
     Dates: start: 20111017, end: 20111017
  23. VITAMEDIN CAPSULE [Concomitant]
     Indication: VOMITING
     Dosage: UNK
     Route: 042
     Dates: start: 20111020, end: 20111027
  24. ENALAPRIL MALEATE [Suspect]
     Indication: CARDIAC FAILURE
     Dosage: 10 MG, DAILY
     Route: 048
     Dates: start: 20100319
  25. LASIX [Concomitant]
     Indication: CARDIAC FAILURE CHRONIC
     Dosage: 20 MG, UNK
     Route: 048
     Dates: end: 20111008
  26. MUCOSTA [Concomitant]
     Indication: NAUSEA
     Dosage: UNK
     Route: 048
     Dates: start: 20111017, end: 20111021
  27. LAC B [Concomitant]
     Indication: NAUSEA
     Dosage: UNK
     Dates: start: 20111017
  28. BERIZYM [Concomitant]
     Indication: VOMITING
     Dosage: UNK
     Route: 048
     Dates: start: 20111110
  29. LECICARBON [Concomitant]
     Indication: NAUSEA
     Dosage: UNK
     Route: 051
     Dates: start: 20111020, end: 20111020
  30. SOLDEM 1 [Concomitant]
     Indication: VOMITING
     Dosage: UNK
     Route: 042
     Dates: start: 20111020, end: 20111103
  31. PRIMPERAN TAB [Concomitant]
     Indication: NAUSEA
     Dosage: 10 MG, UNK
     Route: 042
     Dates: start: 20111027, end: 20111102

REACTIONS (4)
  - CARDIAC FAILURE [None]
  - HYPOTENSION [None]
  - GASTROENTERITIS [None]
  - GASTRITIS ATROPHIC [None]
